FAERS Safety Report 10460892 (Version 3)
Quarter: 2014Q4

REPORT INFORMATION
  Report Type: Spontaneous
  Country: US (occurrence: US)
  Receive Date: 20140918
  Receipt Date: 20141024
  Transmission Date: 20150528
  Serious: Yes (Life-Threatening, Other)
  Sender: FDA-Public Use
  Company Number: 2014SP003241

PATIENT
  Age: 48 Year
  Sex: Male
  Weight: 105 kg

DRUGS (4)
  1. LATUDA [Suspect]
     Active Substance: LURASIDONE HYDROCHLORIDE
     Indication: ANGER
     Route: 048
     Dates: start: 20140909, end: 20140923
  2. WELLBUTRIN [Concomitant]
     Active Substance: BUPROPION HYDROCHLORIDE
     Indication: DEPRESSION
     Dates: start: 2005
  3. LAMICTAL [Concomitant]
     Active Substance: LAMOTRIGINE
     Indication: MOOD SWINGS
     Dates: start: 20140725
  4. LATUDA [Suspect]
     Active Substance: LURASIDONE HYDROCHLORIDE
     Indication: MOOD SWINGS
     Route: 048
     Dates: start: 20140909, end: 20140923

REACTIONS (6)
  - Suicidal ideation [Recovered/Resolved]
  - Aggression [Recovered/Resolved]
  - Suicidal behaviour [Recovered/Resolved]
  - Off label use [None]
  - Restlessness [Recovered/Resolved]
  - Homicidal ideation [Recovered/Resolved]

NARRATIVE: CASE EVENT DATE: 20140923
